FAERS Safety Report 8505980-0 (Version None)
Quarter: 2012Q3

REPORT INFORMATION
  Report Type: 
  Country: None (occurrence: None)
  Receive Date: 20120712
  Receipt Date: 20120424
  Transmission Date: 20120928
  Serious: Yes (Other)
  Sender: FDA-Public Use
  Company Number: AU-GLAXOSMITHKLINE-B0798535A

PATIENT
  Sex: Male
  Weight: 81 kg

DRUGS (4)
  1. MALARONE [Suspect]
     Indication: MALARIA PROPHYLAXIS
     Dates: start: 20100801, end: 20101105
  2. PRAVASTATIN [Concomitant]
     Indication: HYPERLIPIDAEMIA
     Dosage: 40MG AT NIGHT
  3. DERALIN [Concomitant]
  4. FELOCOR [Concomitant]
     Indication: HYPERTENSION

REACTIONS (1)
  - DRUG-INDUCED LIVER INJURY [None]
